FAERS Safety Report 9916610 (Version 11)
Quarter: 2015Q1

REPORT INFORMATION
  Report Type: Spontaneous
  Country: US (occurrence: US)
  Receive Date: 20140221
  Receipt Date: 20150202
  Transmission Date: 20150721
  Serious: Yes (Hospitalization, Other)
  Sender: FDA-Public Use
  Company Number: US-009507513-1203USA02666

PATIENT
  Sex: Female
  Weight: 65.31 kg

DRUGS (6)
  1. FOSAMAX [Suspect]
     Active Substance: ALENDRONATE SODIUM
     Dosage: 70 MG, UNK
     Route: 048
     Dates: start: 20010119, end: 2007
  2. ALENDRONATE SODIUM. [Suspect]
     Active Substance: ALENDRONATE SODIUM
     Indication: BONE DENSITY DECREASED
     Dosage: 70 MG, QW
     Route: 048
     Dates: end: 200912
  3. FOSAMAX [Suspect]
     Active Substance: ALENDRONATE SODIUM
     Indication: BONE DENSITY DECREASED
     Dosage: UNK
     Route: 048
     Dates: start: 20000911, end: 200912
  4. FOSAMAX PLUS D [Suspect]
     Active Substance: ALENDRONATE SODIUM\CHOLECALCIFEROL
     Indication: BONE DENSITY DECREASED
     Dosage: 70-5600, QW
     Route: 048
     Dates: start: 20070702, end: 200912
  5. FOSAMAX [Suspect]
     Active Substance: ALENDRONATE SODIUM
     Dosage: 35 MG, QW
     Route: 048
  6. ALENDRONATE SODIUM. [Suspect]
     Active Substance: ALENDRONATE SODIUM
     Dosage: 35 MG, QW
     Route: 048
     Dates: start: 20080604, end: 20080829

REACTIONS (49)
  - Hiatus hernia [Unknown]
  - Mitral valve prolapse [Unknown]
  - Vertebral foraminal stenosis [Unknown]
  - Inappropriate schedule of drug administration [Unknown]
  - Femur fracture [Unknown]
  - Bone marrow oedema [Unknown]
  - Device issue [Unknown]
  - Patellofemoral pain syndrome [Unknown]
  - Blood cholesterol increased [Unknown]
  - Adverse event [Unknown]
  - Spondylolisthesis [Unknown]
  - Fall [Unknown]
  - Iliotibial band syndrome [Unknown]
  - Osteopenia [Unknown]
  - Lumbar spinal stenosis [Not Recovered/Not Resolved]
  - Conjunctival hyperaemia [Unknown]
  - Headache [Unknown]
  - Pain in extremity [Unknown]
  - Spinal osteoarthritis [Unknown]
  - Open reduction of fracture [Unknown]
  - Femur fracture [Recovered/Resolved]
  - High density lipoprotein increased [Unknown]
  - Meniscus injury [Unknown]
  - Fall [Unknown]
  - Spondylolysis [Unknown]
  - Osteonecrosis [Unknown]
  - Exostosis [Unknown]
  - Haemorrhoids [Unknown]
  - Meniscus removal [Unknown]
  - Back pain [Unknown]
  - Lower limb fracture [Unknown]
  - Limb asymmetry [Unknown]
  - Osteoarthritis [Unknown]
  - Hand fracture [Recovered/Resolved]
  - Dupuytren^s contracture [Unknown]
  - Extrasystoles [Unknown]
  - Fracture delayed union [Unknown]
  - Bifascicular block [Unknown]
  - Hypercalciuria [Unknown]
  - Hypercalcaemia [Unknown]
  - Intervertebral disc protrusion [Unknown]
  - Thyroid disorder [Unknown]
  - Arthritis [Unknown]
  - Neuroma [Unknown]
  - Hyperparathyroidism [Unknown]
  - Periarthritis [Unknown]
  - Thyroid neoplasm [Unknown]
  - Cataract [Unknown]
  - Breast discharge [Unknown]

NARRATIVE: CASE EVENT DATE: 200206
